FAERS Safety Report 4477937-0 (Version None)
Quarter: 2004Q4

REPORT INFORMATION
  Report Type: 
  Country: None (occurrence: None)
  Receive Date: 20041018
  Receipt Date: 20041008
  Transmission Date: 20050328
  Serious: Yes (Disabling)
  Sender: FDA-Public Use
  Company Number: US-MERCK-0410USA01127

PATIENT
  Age: 40 Year
  Sex: Female

DRUGS (14)
  1. PERCOCET [Concomitant]
     Route: 065
  2. KLONOPIN [Concomitant]
     Route: 065
  3. LASIX [Concomitant]
     Route: 065
  4. SYNTHROID [Concomitant]
     Route: 065
  5. PROVIGIL [Concomitant]
     Route: 065
  6. PROTONIX [Concomitant]
     Route: 065
  7. POTASSIUM CHLORIDE [Concomitant]
     Route: 065
  8. VIOXX [Suspect]
     Indication: NEURALGIA
     Route: 048
     Dates: start: 20040701, end: 20040701
  9. VIOXX [Suspect]
     Route: 048
     Dates: start: 20040701, end: 20040701
  10. VIOXX [Suspect]
     Indication: INFLAMMATION
     Route: 048
     Dates: start: 20040701, end: 20040701
  11. VIOXX [Suspect]
     Route: 048
     Dates: start: 20040701, end: 20040701
  12. CRESTOR [Concomitant]
     Route: 065
  13. EFFEXOR [Concomitant]
     Route: 065
  14. ZONEGRAN [Concomitant]
     Route: 065

REACTIONS (7)
  - ASTHENIA [None]
  - BURNING SENSATION [None]
  - CLAVICLE FRACTURE [None]
  - FALL [None]
  - GENERALISED OEDEMA [None]
  - PAIN IN EXTREMITY [None]
  - SENSORY DISTURBANCE [None]
